FAERS Safety Report 9323479 (Version 1)
Quarter: 2013Q2

REPORT INFORMATION
  Report Type: Spontaneous
  Country: US (occurrence: US)
  Receive Date: 20130603
  Receipt Date: 20130603
  Transmission Date: 20140414
  Serious: Yes (Death, Hospitalization)
  Sender: FDA-Public Use
  Company Number: US-PFIZER INC-2013165148

PATIENT
  Age: 73 Year
  Sex: Male
  Weight: 53.52 kg

DRUGS (1)
  1. SUTENT [Suspect]
     Indication: GASTRIC CANCER
     Dosage: 50 MG ONCE A DAY
     Route: 048
     Dates: start: 201301, end: 201305

REACTIONS (4)
  - Disease progression [Fatal]
  - Gastric cancer [Fatal]
  - Pneumonia [Unknown]
  - Vomiting [Unknown]
